FAERS Safety Report 6140257-2 (Version None)
Quarter: 2009Q2

REPORT INFORMATION
  Report Type: 
  Country: None (occurrence: None)
  Receive Date: 20090401
  Receipt Date: 20090324
  Transmission Date: 20091009
  Serious: Yes (Death)
  Sender: FDA-Public Use
  Company Number: JP-ABBOTT-09P-087-0564597-00

PATIENT
  Age: 72 Year
  Sex: Male

DRUGS (4)
  1. LEUPLIN SR FOR INJECTION [Suspect]
     Indication: PROSTATE CANCER STAGE IV
     Route: 058
     Dates: start: 20061106, end: 20080321
  2. POLLAKISU [Concomitant]
     Indication: DYSURIA
     Route: 048
     Dates: end: 20080521
  3. ZYLORIC [Concomitant]
     Indication: HYPERURICAEMIA
     Route: 048
     Dates: end: 20080521
  4. AVISHOT [Concomitant]
     Indication: DYSURIA
     Route: 048
     Dates: start: 20070127, end: 20080521

REACTIONS (1)
  - DEATH [None]
